FAERS Safety Report 21922806 (Version 1)
Quarter: 2023Q1

REPORT INFORMATION
  Report Type: Spontaneous
  Country: US (occurrence: US)
  Receive Date: 20230128
  Receipt Date: 20230128
  Transmission Date: 20230417
  Serious: No
  Sender: FDA-Public Use
  Company Number: US-drreddys-SPO/USA/23/0159723

PATIENT
  Age: 65 Year
  Sex: Female

DRUGS (4)
  1. LENALIDOMIDE [Suspect]
     Active Substance: LENALIDOMIDE
     Indication: Plasma cell myeloma
     Dosage: ON DAYS 1-21 THEN 7 DAYS OFF AND REPEAT
     Route: 048
     Dates: start: 20221024
  2. DEXAMETHASONE [Concomitant]
     Active Substance: DEXAMETHASONE
     Indication: Product used for unknown indication
  3. DARZALEX SOL 400MG/20ML [Concomitant]
     Indication: Product used for unknown indication
     Dosage: 400MG/20ML
  4. XGEVA SOL 120MG/1.7ML [Concomitant]
     Indication: Product used for unknown indication
     Dosage: 120MG/1.7ML

REACTIONS (2)
  - Dyspnoea [Recovered/Resolved]
  - Product administration interrupted [Unknown]
